FAERS Safety Report 13995593 (Version 13)
Quarter: 2018Q3

REPORT INFORMATION
  Report Type: Spontaneous
  Country: PR (occurrence: PR)
  Receive Date: 20170921
  Receipt Date: 20180803
  Transmission Date: 20181010
  Serious: Yes (Hospitalization, Other)
  Sender: FDA-Public Use
  Company Number: PR-PFIZER INC-2017403699

PATIENT
  Age: 71 Year
  Sex: Male
  Weight: 54 kg

DRUGS (8)
  1. CENTRUM [Concomitant]
     Active Substance: VITAMINS
     Dosage: UNK
  2. SINGULAIR [Concomitant]
     Active Substance: MONTELUKAST SODIUM
     Dosage: UNK
  3. SUTENT [Suspect]
     Active Substance: SUNITINIB MALATE
     Dosage: 50 MG, CYCLIC (28 DAYS ON, 14 DAYS OFF)
     Dates: start: 20170823
  4. PANTOPRAZOLE [Concomitant]
     Active Substance: PANTOPRAZOLE
     Dosage: UNK
  5. SUTENT [Suspect]
     Active Substance: SUNITINIB MALATE
     Indication: METASTATIC RENAL CELL CARCINOMA
     Dosage: 50 MG, CYCLIC (DAILY, FOR 28 DAYS ON AND 14 DAYS OFF/DAILY 1?28 WITH REST OF 2 WEEKS)
     Route: 048
     Dates: start: 20170822
  6. ALBUTEROL. [Concomitant]
     Active Substance: ALBUTEROL
     Dosage: UNK
  7. LISINOPRIL. [Concomitant]
     Active Substance: LISINOPRIL
     Dosage: UNK
  8. ACETAMINOPHEN. [Concomitant]
     Active Substance: ACETAMINOPHEN
     Dosage: UNK

REACTIONS (35)
  - Abdominal discomfort [Unknown]
  - Headache [Unknown]
  - Vomiting [Unknown]
  - Ageusia [Unknown]
  - Swelling face [Unknown]
  - Oral discomfort [Unknown]
  - Diarrhoea [Unknown]
  - Periorbital oedema [Unknown]
  - Nausea [Recovering/Resolving]
  - Skin exfoliation [Recovered/Resolved]
  - Constipation [Unknown]
  - Decreased appetite [Unknown]
  - Dysgeusia [Unknown]
  - Rectal haemorrhage [Unknown]
  - Dyspepsia [Unknown]
  - Oral pain [Unknown]
  - Tendon pain [Unknown]
  - Cough [Not Recovered/Not Resolved]
  - Weight decreased [Unknown]
  - Asthenia [Unknown]
  - Pain [Unknown]
  - Abdominal pain upper [Unknown]
  - Somnolence [Unknown]
  - Blister [Unknown]
  - Skin fissures [Recovered/Resolved]
  - Malaise [Unknown]
  - Haemoglobin decreased [Unknown]
  - Erythema [Unknown]
  - Dizziness [Unknown]
  - Fatigue [Unknown]
  - Depressed mood [Unknown]
  - Feeling hot [Unknown]
  - Peripheral swelling [Unknown]
  - Haemoptysis [Not Recovered/Not Resolved]
  - Glossodynia [Unknown]

NARRATIVE: CASE EVENT DATE: 2017
